FAERS Safety Report 10882584 (Version 9)
Quarter: 2015Q3

REPORT INFORMATION
  Report Type: Report from Study
  Country: US (occurrence: US)
  Receive Date: 20150303
  Receipt Date: 20150728
  Transmission Date: 20151125
  Serious: Yes (Hospitalization, Other)
  Sender: FDA-Public Use
  Company Number: US-SA-2013SA135206

PATIENT
  Age: 51 Year
  Sex: Female

DRUGS (5)
  1. AUBAGIO [Suspect]
     Active Substance: TERIFLUNOMIDE
     Indication: MULTIPLE SCLEROSIS
     Route: 048
     Dates: start: 20131220, end: 20140118
  2. AUBAGIO [Suspect]
     Active Substance: TERIFLUNOMIDE
     Indication: MULTIPLE SCLEROSIS
     Route: 048
     Dates: start: 2015
  3. AUBAGIO [Suspect]
     Active Substance: TERIFLUNOMIDE
     Indication: MULTIPLE SCLEROSIS
     Route: 048
  4. AUBAGIO [Suspect]
     Active Substance: TERIFLUNOMIDE
     Indication: MULTIPLE SCLEROSIS
     Route: 048
     Dates: end: 201503
  5. AMPYRA [Concomitant]
     Active Substance: DALFAMPRIDINE
     Indication: MULTIPLE SCLEROSIS
     Dates: start: 20140911

REACTIONS (17)
  - Gallbladder disorder [Not Recovered/Not Resolved]
  - Muscle spasticity [Recovering/Resolving]
  - Fall [Not Recovered/Not Resolved]
  - Gait disturbance [Not Recovered/Not Resolved]
  - Joint stiffness [Not Recovered/Not Resolved]
  - Multiple sclerosis relapse [Not Recovered/Not Resolved]
  - Peripheral swelling [Unknown]
  - Post procedural bile leak [Not Recovered/Not Resolved]
  - Fatigue [Not Recovered/Not Resolved]
  - Cognitive disorder [Unknown]
  - Feeling abnormal [Not Recovered/Not Resolved]
  - Sensory disturbance [Not Recovered/Not Resolved]
  - Lethargy [Unknown]
  - Tremor [Recovering/Resolving]
  - Asthenia [Recovering/Resolving]
  - Balance disorder [Recovering/Resolving]
  - Drug dose omission [Unknown]

NARRATIVE: CASE EVENT DATE: 201401
